FAERS Safety Report 16656912 (Version 1)
Quarter: 2019Q3

REPORT INFORMATION
  Report Type: Report from Study
  Country: None (occurrence: GT)
  Receive Date: 20190801
  Receipt Date: 20190801
  Transmission Date: 20191004
  Serious: Yes (Death, Other)
  Sender: FDA-Public Use
  Company Number: GT-ABBVIE-19K-069-2873596-00

PATIENT
  Age: 37 Year
  Sex: Female

DRUGS (1)
  1. ZEMPLAR [Suspect]
     Active Substance: PARICALCITOL
     Indication: HYPERPARATHYROIDISM SECONDARY
     Route: 042
     Dates: start: 20170217

REACTIONS (2)
  - Respiratory arrest [Fatal]
  - Parathyroid gland operation [Unknown]

NARRATIVE: CASE EVENT DATE: 201907
